APPROVED DRUG PRODUCT: FUROSEMIDE
Active Ingredient: FUROSEMIDE
Strength: 40MG
Dosage Form/Route: TABLET;ORAL
Application: N018419 | Product #002
Applicant: WARNER CHILCOTT DIV WARNER LAMBERT CO
Approved: Jan 31, 1983 | RLD: No | RS: No | Type: DISCN